FAERS Safety Report 10261465 (Version 1)
Quarter: 2014Q2

REPORT INFORMATION
  Report Type: Spontaneous
  Country: US (occurrence: US)
  Receive Date: 20140626
  Receipt Date: 20140626
  Transmission Date: 20141212
  Serious: No
  Sender: FDA-Public Use
  Company Number: US-009507513-1405USA014915

PATIENT
  Age: 73 Year
  Sex: Female
  Weight: 56.24 kg

DRUGS (1)
  1. CORICIDIN HBP COUGH AND COLD [Suspect]
     Indication: COUGH
     Dosage: UNK, UNKNOWN
     Route: 048
     Dates: start: 20140522

REACTIONS (1)
  - Inappropriate schedule of drug administration [Unknown]
